FAERS Safety Report 14527326 (Version 1)
Quarter: 2018Q1

REPORT INFORMATION
  Report Type: Report from Study
  Country: CO (occurrence: CO)
  Receive Date: 20180213
  Receipt Date: 20180213
  Transmission Date: 20180509
  Serious: Yes (Other)
  Sender: FDA-Public Use
  Company Number: PHHY2017CO091406

PATIENT
  Age: 24 Year
  Sex: Male
  Weight: 62 kg

DRUGS (3)
  1. PREDNISOLONE. [Concomitant]
     Active Substance: PREDNISOLONE
     Indication: PRODUCT USED FOR UNKNOWN INDICATION
     Route: 065
  2. REVOLADE [Suspect]
     Active Substance: ELTROMBOPAG
     Indication: IMMUNE THROMBOCYTOPENIC PURPURA
     Dosage: 50 MG, QD
     Route: 048
     Dates: start: 20120702
  3. REVOLADE [Suspect]
     Active Substance: ELTROMBOPAG
     Dosage: 25 MG, TID
     Route: 048
     Dates: start: 20171226

REACTIONS (6)
  - Petechiae [Unknown]
  - Disease recurrence [Unknown]
  - Platelet count decreased [Recovering/Resolving]
  - Depression [Unknown]
  - Contusion [Unknown]
  - Somnambulism [Unknown]

NARRATIVE: CASE EVENT DATE: 20170601
